FAERS Safety Report 23952899 (Version 1)
Quarter: 2024Q2

REPORT INFORMATION
  Report Type: Spontaneous
  Country: US (occurrence: US)
  Receive Date: 20240607
  Receipt Date: 20240607
  Transmission Date: 20240716
  Serious: No
  Sender: FDA-Public Use
  Company Number: US-SA-SAC20240605000095

PATIENT
  Age: 57 Year
  Sex: Female
  Weight: 78.4 kg

DRUGS (3)
  1. KEVZARA [Suspect]
     Active Substance: SARILUMAB
     Indication: Rheumatoid arthritis
     Dosage: 200 MG, QOW
     Route: 058
     Dates: start: 20240419
  2. FLONASE ALLERGY RELIEF [Concomitant]
     Active Substance: FLUTICASONE PROPIONATE
  3. ZYRTEC [Concomitant]
     Active Substance: CETIRIZINE HYDROCHLORIDE

REACTIONS (9)
  - Musculoskeletal stiffness [Not Recovered/Not Resolved]
  - Allergic cough [Unknown]
  - Dyspnoea [Unknown]
  - Condition aggravated [Unknown]
  - Asthenia [Unknown]
  - Rib fracture [Unknown]
  - Pain [Unknown]
  - Dyskinesia [Not Recovered/Not Resolved]
  - Injection site rash [Unknown]

NARRATIVE: CASE EVENT DATE: 20240101
